FAERS Safety Report 6733341-3 (Version None)
Quarter: 2010Q2

REPORT INFORMATION
  Report Type: 
  Country: None (occurrence: None)
  Receive Date: 20100520
  Receipt Date: 20100512
  Transmission Date: 20101027
  Serious: Yes (Other)
  Sender: FDA-Public Use
  Company Number: DE-PFIZER INC-2010050980

PATIENT
  Age: 70 Year
  Sex: Male

DRUGS (1)
  1. TOVIAZ [Suspect]
     Dosage: 8 MG, UNK
     Route: 048

REACTIONS (3)
  - BLOOD PRESSURE DECREASED [None]
  - DRY MOUTH [None]
  - DYSGEUSIA [None]
